FAERS Safety Report 20827168 (Version 1)
Quarter: 2022Q2

REPORT INFORMATION
  Report Type: Report from Study
  Country: FR (occurrence: FR)
  Receive Date: 20220513
  Receipt Date: 20220513
  Transmission Date: 20220721
  Serious: Yes (Death, Other)
  Sender: FDA-Public Use
  Company Number: FR-PFM-2022-04467

PATIENT
  Age: 82 Year
  Sex: Female

DRUGS (2)
  1. ENCORAFENIB [Suspect]
     Active Substance: ENCORAFENIB
     Indication: Metastatic malignant melanoma
     Dosage: UNK
     Route: 065
  2. BINIMETINIB [Suspect]
     Active Substance: BINIMETINIB
     Indication: Metastatic malignant melanoma
     Dosage: UNK
     Route: 065

REACTIONS (8)
  - Pulmonary embolism [Fatal]
  - Bacterial infection [Fatal]
  - Respiratory failure [Fatal]
  - Sepsis [Fatal]
  - Diarrhoea [Unknown]
  - Haematochezia [Unknown]
  - Shock [Unknown]
  - Intestinal ulcer [Unknown]
